FAERS Safety Report 4497231-1 (Version None)
Quarter: 2004Q4

REPORT INFORMATION
  Report Type: 
  Country: None (occurrence: None)
  Receive Date: 20041110
  Receipt Date: 20041005
  Transmission Date: 20050328
  Serious: Yes (Hospitalization)
  Sender: FDA-Public Use
  Company Number: 200413760FR

PATIENT
  Age: 60 Year
  Sex: Male

DRUGS (2)
  1. TAXOTERE [Suspect]
     Indication: PROSTATE CANCER
     Route: 041
     Dates: start: 20040401
  2. PREDNISOLONE [Concomitant]

REACTIONS (5)
  - DRUG TOXICITY [None]
  - INFLAMMATION [None]
  - NEPHRITIS INTERSTITIAL [None]
  - NEPHROSCLEROSIS [None]
  - RENAL FAILURE CHRONIC [None]
